FAERS Safety Report 9764191 (Version 2)
Quarter: 2014Q1

REPORT INFORMATION
  Report Type: Spontaneous
  Country: DE (occurrence: DE)
  Receive Date: 20131216
  Receipt Date: 20140205
  Transmission Date: 20141002
  Serious: Yes (Death)
  Sender: FDA-Public Use
  Company Number: PHHY2013DE146792

PATIENT
  Sex: Female

DRUGS (1)
  1. CICLOSPORIN [Suspect]
     Indication: PROPHYLAXIS AGAINST TRANSPLANT REJECTION
     Dosage: 75 MG, BID

REACTIONS (2)
  - Brain injury [Fatal]
  - Cytomegalovirus infection [Fatal]
